FAERS Safety Report 8037506-2 (Version None)
Quarter: 2012Q1

REPORT INFORMATION
  Report Type: 
  Country: None (occurrence: None)
  Receive Date: 20120111
  Receipt Date: 20120106
  Transmission Date: 20120608
  Serious: Yes (Other)
  Sender: FDA-Public Use
  Company Number: BR-PFIZER INC-2011292056

PATIENT
  Age: 49 Year
  Sex: Female
  Weight: 92 kg

DRUGS (5)
  1. VARENICLINE TARTRATE [Suspect]
     Dosage: 1 MG, EVERY 12 HOURS (2X/DAY)
     Route: 048
  2. CLINFAR [Concomitant]
     Indication: BLOOD CHOLESTEROL INCREASED
     Dosage: 10 MG, 1X/DAY
     Dates: start: 20090101
  3. LEVOTHYROXINE SODIUM [Concomitant]
     Indication: HYPOTHYROIDISM
     Dosage: 100 UG, 1X/DAY
     Dates: start: 20050101
  4. SERTRALINE HYDROCHLORIDE [Concomitant]
     Indication: ANXIETY
     Dosage: UNK
     Dates: start: 20110501
  5. VARENICLINE TARTRATE [Suspect]
     Indication: SMOKING CESSATION THERAPY
     Dosage: UNK
     Route: 048
     Dates: start: 20110828

REACTIONS (6)
  - SELF ESTEEM DECREASED [None]
  - DEPRESSED MOOD [None]
  - EMOTIONAL DISORDER [None]
  - WOUND COMPLICATION [None]
  - DIZZINESS [None]
  - IMPAIRED HEALING [None]
